FAERS Safety Report 9717544 (Version 3)
Quarter: 2015Q3

REPORT INFORMATION
  Report Type: Spontaneous
  Country: US (occurrence: US)
  Receive Date: 20131127
  Receipt Date: 20150803
  Transmission Date: 20151125
  Serious: No
  Sender: FDA-Public Use
  Company Number: US-GILEAD-2009-0020201

PATIENT
  Age: 58 Year
  Sex: Male
  Weight: 136.8 kg

DRUGS (8)
  1. HYDROCORTISONE. [Concomitant]
     Active Substance: HYDROCORTISONE
  2. DILTIAZEM HCL [Concomitant]
     Active Substance: DILTIAZEM HYDROCHLORIDE
  3. LETAIRIS [Suspect]
     Active Substance: AMBRISENTAN
     Indication: PULMONARY ARTERIAL HYPERTENSION
     Route: 048
     Dates: start: 20090116, end: 20090121
  4. COUMADIN [Concomitant]
     Active Substance: WARFARIN SODIUM
  5. LASIX [Concomitant]
     Active Substance: FUROSEMIDE
  6. CLONAZEPAM. [Concomitant]
     Active Substance: CLONAZEPAM
  7. OXYCODONE [Concomitant]
     Active Substance: OXYCODONE
  8. VYTORIN [Concomitant]
     Active Substance: EZETIMIBE\SIMVASTATIN
     Route: 048

REACTIONS (4)
  - Fatigue [Unknown]
  - Flushing [Unknown]
  - Blood potassium abnormal [Unknown]
  - Muscle spasms [Unknown]
